FAERS Safety Report 6674817-7 (Version None)
Quarter: 2010Q1

REPORT INFORMATION
  Report Type: 
  Country: None (occurrence: None)
  Receive Date: 20100331
  Receipt Date: 20091210
  Transmission Date: 20100710
  Serious: Yes (Hospitalization, Other)
  Sender: FDA-Public Use
  Company Number: 2009309250

PATIENT
  Sex: Male
  Weight: 90.7 kg

DRUGS (6)
  1. SUTENT [Suspect]
     Indication: RENAL CANCER
     Dosage: 50 MG, 1X/DAY
  2. VERAPAMIL [Concomitant]
  3. WARFARIN SODIUM [Concomitant]
  4. NISTATIN (NYSTATIN) [Concomitant]
  5. FINASTERIDE [Concomitant]
  6. SIMVASTATIN [Concomitant]

REACTIONS (2)
  - ASTHENIA [None]
  - PLATELET COUNT DECREASED [None]
